FAERS Safety Report 7543250-8 (Version None)
Quarter: 2011Q2

REPORT INFORMATION
  Report Type: 
  Country: None (occurrence: None)
  Receive Date: 20110613
  Receipt Date: 20110609
  Transmission Date: 20111010
  Serious: Yes (Other)
  Sender: FDA-Public Use
  Company Number: CHPA2011US07809

PATIENT
  Age: 80 Year
  Sex: Male

DRUGS (3)
  1. VOLTAREN [Suspect]
     Indication: ARTHRITIS
     Dosage: ^A LITTLE BIT, SPARINGLY^
     Route: 061
     Dates: start: 20110501
  2. FLOMAX [Concomitant]
  3. VOLTAREN [Suspect]
     Dosage: ^A LITTLE BIT^, TID
     Route: 061
     Dates: end: 20100101

REACTIONS (4)
  - PHOTOPSIA [None]
  - UNDERDOSE [None]
  - WRONG TECHNIQUE IN DRUG USAGE PROCESS [None]
  - CEREBROVASCULAR ACCIDENT [None]
